FAERS Safety Report 13549665 (Version 2)
Quarter: 2017Q2

REPORT INFORMATION
  Report Type: Report from Study
  Country: NL (occurrence: NL)
  Receive Date: 20170516
  Receipt Date: 20170524
  Transmission Date: 20170830
  Serious: Yes (Hospitalization, Other)
  Sender: FDA-Public Use
  Company Number: NL-PFIZER INC-2017211521

PATIENT
  Age: 72 Year
  Sex: Female
  Weight: 106 kg

DRUGS (9)
  1. AMOXICILLINE/CLAVULAANZUUR [Concomitant]
     Active Substance: AMOXICILLIN\CLAVULANATE POTASSIUM
     Indication: ERYSIPELAS
     Dosage: 1200 MG, 3X/DAY
     Route: 042
     Dates: start: 20170509
  2. PALBOCICLIB [Suspect]
     Active Substance: PALBOCICLIB
     Dosage: 125 MG, CYCLIC (ONCE DAILY (DAY 1-21))
     Route: 048
     Dates: start: 20170217, end: 20170510
  3. CIPROXIN /00697201/ [Concomitant]
     Active Substance: CIPROFLOXACIN
     Indication: ERYSIPELAS
     Dosage: 500 MG, 2X/DAY
     Route: 048
     Dates: start: 20170509
  4. NADROPARINE [Concomitant]
     Active Substance: NADROPARIN
     Indication: PULMONARY EMBOLISM
     Dosage: 9500 IU, 2X/DAY
     Route: 058
     Dates: start: 20170512
  5. COMBIVENT [Concomitant]
     Active Substance: ALBUTEROL SULFATE\IPRATROPIUM BROMIDE
     Indication: RESPIRATORY DISTRESS
     Dosage: UNK, CYCLIC (6X/DAY)
     Dates: start: 20170509
  6. FULVESTRANT [Concomitant]
     Active Substance: FULVESTRANT
     Dosage: UNK
     Dates: start: 20170217
  7. BUMETANIDE. [Concomitant]
     Active Substance: BUMETANIDE
     Indication: OEDEMA
     Dosage: 1 MG, 1X/DAY
     Route: 048
     Dates: start: 20170512
  8. CIPROXIN /00697201/ [Concomitant]
     Active Substance: CIPROFLOXACIN
     Indication: PNEUMONIA
  9. AMOXICILLINE/CLAVULAANZUUR [Concomitant]
     Active Substance: AMOXICILLIN\CLAVULANATE POTASSIUM
     Indication: PNEUMONIA

REACTIONS (3)
  - Erysipelas [Not Recovered/Not Resolved]
  - Pneumonia [Recovering/Resolving]
  - Pulmonary embolism [Recovering/Resolving]

NARRATIVE: CASE EVENT DATE: 20170509
